FAERS Safety Report 24370508 (Version 1)
Quarter: 2024Q3

REPORT INFORMATION
  Report Type: Spontaneous
  Country: JP (occurrence: JP)
  Receive Date: 20240927
  Receipt Date: 20240927
  Transmission Date: 20241016
  Serious: Yes (Hospitalization, Other)
  Sender: AMNEAL
  Company Number: JP-AMNEAL PHARMACEUTICALS-2024-AMRX-03485

PATIENT
  Age: 57 Year
  Sex: Female

DRUGS (6)
  1. ALYMSYS [Suspect]
     Active Substance: BEVACIZUMAB-MALY
     Indication: Cervix carcinoma recurrent
     Dosage: UNK
     Route: 065
  2. ALYMSYS [Suspect]
     Active Substance: BEVACIZUMAB-MALY
     Indication: Metastases to lung
  3. CARBOPLATIN [Concomitant]
     Active Substance: CARBOPLATIN
     Indication: Cervix carcinoma recurrent
     Dosage: UNK
     Route: 065
  4. CARBOPLATIN [Concomitant]
     Active Substance: CARBOPLATIN
     Indication: Metastases to lung
  5. PACLITAXEL [Concomitant]
     Active Substance: PACLITAXEL
     Indication: Cervix carcinoma recurrent
     Dosage: UNK
     Route: 065
  6. PACLITAXEL [Concomitant]
     Active Substance: PACLITAXEL
     Indication: Metastases to lung

REACTIONS (1)
  - Pneumothorax spontaneous [Recovered/Resolved]
